FAERS Safety Report 6313249-8 (Version None)
Quarter: 2009Q3

REPORT INFORMATION
  Report Type: 
  Country: None (occurrence: None)
  Receive Date: 20090818
  Receipt Date: 20090813
  Transmission Date: 20100115
  Serious: Yes (Other)
  Sender: FDA-Public Use
  Company Number: US-ASTRAZENECA-2009SE08088

PATIENT
  Age: 24 Year
  Sex: Male

DRUGS (1)
  1. SEROQUEL XR [Suspect]
     Route: 048
     Dates: start: 20090521

REACTIONS (1)
  - HOMICIDAL IDEATION [None]
